FAERS Safety Report 4305551-6 (Version None)
Quarter: 2004Q1

REPORT INFORMATION
  Report Type: 
  Country: None (occurrence: None)
  Receive Date: 20040226
  Receipt Date: 20031121
  Transmission Date: 20041129
  Serious: No
  Sender: FDA-Public Use
  Company Number: US-BRISTOL-MYERS SQUIBB COMPANY-12442091

PATIENT
  Age: 5 Year
  Sex: Female

DRUGS (3)
  1. ABILIFY [Suspect]
     Indication: BIPOLAR DISORDER
  2. CLONIDINE [Concomitant]
  3. TRAZODONE HCL [Concomitant]

REACTIONS (4)
  - EATING DISORDER [None]
  - HUNGER [None]
  - HYPERPHAGIA [None]
  - WEIGHT INCREASED [None]
